FAERS Safety Report 21395588 (Version 13)
Quarter: 2022Q4

REPORT INFORMATION
  Report Type: Report from Study
  Country: CO (occurrence: None)
  Receive Date: 20220930
  Receipt Date: 20221208
  Transmission Date: 20230113
  Serious: Yes (Hospitalization)
  Sender: FDA-Public Use
  Company Number: CO-Eisai Medical Research-EC-2022-124732

PATIENT
  Age: 73 Year
  Sex: Female
  Weight: 35.8 kg

DRUGS (4)
  1. LENVATINIB [Suspect]
     Active Substance: LENVATINIB
     Indication: Clear cell renal cell carcinoma
     Route: 048
     Dates: start: 20220914, end: 20220921
  2. LENVATINIB [Suspect]
     Active Substance: LENVATINIB
     Route: 048
     Dates: start: 20221006
  3. QUAVONLIMAB [Suspect]
     Active Substance: QUAVONLIMAB
     Indication: Clear cell renal cell carcinoma
     Dosage: MK-1308A (QUAVONLIMAB [MK-1308] 25MG + PEMBROLIZUMAB [MK-3475] 400MG
     Route: 041
     Dates: start: 20220914, end: 20220914
  4. PEMBROLIZUMAB [Suspect]
     Active Substance: PEMBROLIZUMAB
     Dosage: MK-1308A (QUAVONLIMAB [MK-1308] 25MG + PEMBROLIZUMAB [MK-3475] 400MG
     Route: 041
     Dates: start: 20221025

REACTIONS (1)
  - Posterior reversible encephalopathy syndrome [Recovered/Resolved]

NARRATIVE: CASE EVENT DATE: 20220918
